FAERS Safety Report 6647633-X (Version None)
Quarter: 2010Q1

REPORT INFORMATION
  Report Type: 
  Country: None (occurrence: None)
  Receive Date: 20100323
  Receipt Date: 20100323
  Transmission Date: 20100710
  Serious: Yes (Hospitalization)
  Sender: FDA-Public Use
  Company Number: None

PATIENT
  Age: 47 Year
  Sex: Male
  Weight: 88.4514 kg

DRUGS (6)
  1. ZOCOR [Suspect]
     Indication: BLOOD CHOLESTEROL INCREASED
     Dosage: 10 MG 1 DAILY PO
     Route: 048
     Dates: start: 20010501, end: 20040827
  2. LISINOPRIL [Concomitant]
  3. HYDROCHLOROTHIAZIDE [Concomitant]
  4. VITAMIN C [Concomitant]
  5. MULTI-VITAMIN [Concomitant]
  6. ASPIRIN [Concomitant]

REACTIONS (1)
  - RHABDOMYOLYSIS [None]
